FAERS Safety Report 24878790 (Version 1)
Quarter: 2025Q1

REPORT INFORMATION
  Report Type: Spontaneous
  Country: US (occurrence: None)
  Receive Date: 20250123
  Receipt Date: 20250123
  Transmission Date: 20250408
  Serious: Yes (Other)
  Sender: FDA-CTU
  Company Number: None

PATIENT
  Age: 51 Year
  Sex: Female
  Weight: 74.4 kg

DRUGS (2)
  1. PEMIVIBART [Suspect]
     Active Substance: PEMIVIBART
     Indication: COVID-19 prophylaxis
     Route: 041
     Dates: start: 20250120, end: 20250120
  2. PEMIVIBART [Concomitant]
     Active Substance: PEMIVIBART
     Dates: start: 20250120, end: 20250120

REACTIONS (2)
  - Hypersensitivity [None]
  - Infusion related reaction [None]

NARRATIVE: CASE EVENT DATE: 20250120
